FAERS Safety Report 10947870 (Version 3)
Quarter: 2015Q2

REPORT INFORMATION
  Report Type: Spontaneous
  Country: US (occurrence: US)
  Receive Date: 20150324
  Receipt Date: 20150417
  Transmission Date: 20150821
  Serious: Yes (Death, Hospitalization)
  Sender: FDA-Public Use
  Company Number: US-AMGEN-USASP2015026425

PATIENT
  Age: 81 Year
  Sex: Female
  Weight: 55.78 kg

DRUGS (1)
  1. PROLIA [Suspect]
     Active Substance: DENOSUMAB
     Indication: OSTEOPOROSIS POSTMENOPAUSAL
     Dosage: 60 MG/ML, Q6MO
     Route: 058
     Dates: start: 20120503, end: 20141022

REACTIONS (4)
  - Respiratory failure [Fatal]
  - Fall [Unknown]
  - Cardiac failure congestive [Fatal]
  - Humerus fracture [Unknown]

NARRATIVE: CASE EVENT DATE: 20141224
